FAERS Safety Report 12587210 (Version 2)
Quarter: 2016Q3

REPORT INFORMATION
  Report Type: Spontaneous
  Country: US (occurrence: US)
  Receive Date: 20160725
  Receipt Date: 20160805
  Transmission Date: 20161109
  Serious: Yes (Death, Other)
  Sender: FDA-Public Use
  Company Number: US-ASTELLAS-2016US027620

PATIENT
  Age: 83 Year
  Sex: Male

DRUGS (1)
  1. XTANDI [Suspect]
     Active Substance: ENZALUTAMIDE
     Indication: PROSTATE CANCER
     Route: 048
     Dates: end: 20160715

REACTIONS (5)
  - Malignant neoplasm progression [Fatal]
  - Cardiac failure congestive [Fatal]
  - Renal failure [Fatal]
  - Pulmonary hypertension [Fatal]
  - Respiratory distress [Fatal]

NARRATIVE: CASE EVENT DATE: 201607
